FAERS Safety Report 9300264 (Version 1)
Quarter: 2013Q2

REPORT INFORMATION
  Report Type: Report from Study
  Country: NO (occurrence: NO)
  Receive Date: 20130521
  Receipt Date: 20130521
  Transmission Date: 20140414
  Serious: Yes (Hospitalization)
  Sender: FDA-Public Use
  Company Number: NO-BAYER-2013-061905

PATIENT
  Age: 65 Year
  Sex: Male
  Weight: 94 kg

DRUGS (6)
  1. ALPHARADIN [Suspect]
     Indication: PROSTATE CANCER METASTATIC
     Dosage: UNK
     Dates: start: 20121030, end: 20121030
  2. ALPHARADIN [Suspect]
     Indication: PROSTATE CANCER METASTATIC
     Dosage: 5065 KBQ
     Route: 042
     Dates: start: 20130409, end: 20130409
  3. FENTANYL [Concomitant]
     Indication: BONE PAIN
     Dosage: EVERY THIRD DAY
     Dates: start: 201105
  4. PARACETAMOL [Concomitant]
     Indication: BONE PAIN
     Dosage: 3 G, TOTAL DAILY DOSE
     Route: 048
     Dates: start: 201105
  5. OXYNORM [Concomitant]
     Indication: BONE PAIN
     Dosage: 40 MG, TOTAL DAILY DOSE
     Route: 048
     Dates: start: 201105
  6. BLOOD, WHOLE [Concomitant]
     Dosage: UNK
     Dates: start: 20130426, end: 20130426

REACTIONS (1)
  - Bone pain [Recovered/Resolved]
